FAERS Safety Report 5072607-2 (Version None)
Quarter: 2006Q3

REPORT INFORMATION
  Report Type: 
  Country: None (occurrence: None)
  Receive Date: 20060807
  Receipt Date: 20060717
  Transmission Date: 20061208
  Serious: Yes (Life-Threatening, Disabling)
  Sender: FDA-Public Use
  Company Number: GB-ROCHE-456051

PATIENT
  Age: 14 Year
  Sex: Male
  Weight: 65 kg

DRUGS (1)
  1. ACCUTANE [Suspect]
     Indication: ACNE
     Route: 048
     Dates: start: 20060628, end: 20060704

REACTIONS (3)
  - CARDIAC ARREST [None]
  - NERVOUS SYSTEM DISORDER [None]
  - VENTRICULAR FIBRILLATION [None]
